FAERS Safety Report 6640769-9 (Version None)
Quarter: 2010Q1

REPORT INFORMATION
  Report Type: 
  Country: None (occurrence: None)
  Receive Date: 20100302
  Receipt Date: 20100106
  Transmission Date: 20100710
  Serious: No
  Sender: FDA-Public Use
  Company Number: 2010000313

PATIENT
  Age: 65 Year
  Sex: Male
  Weight: 85.7 kg

DRUGS (3)
  1. TOVIAZ [Suspect]
     Indication: HYPERTONIC BLADDER
     Dosage: 4 MG, 1X/DAY, ORAL
     Route: 048
     Dates: start: 20091118, end: 20100101
  2. LIPITOR [Concomitant]
  3. HYZAAR [Concomitant]

REACTIONS (2)
  - ABNORMAL DREAMS [None]
  - SOMNOLENCE [None]
